FAERS Safety Report 6710172-1 (Version None)
Quarter: 2010Q2

REPORT INFORMATION
  Report Type: 
  Country: None (occurrence: None)
  Receive Date: 20100504
  Receipt Date: 20100423
  Transmission Date: 20101027
  Serious: Yes (Hospitalization, Other)
  Sender: FDA-Public Use
  Company Number: US-WATSON-2010-05763

PATIENT
  Age: 25 Year
  Sex: Female

DRUGS (1)
  1. METOCLOPRAMIDE HYDROCHLORIDE [Suspect]
     Indication: VOMITING IN PREGNANCY
     Dosage: 10 MG, QAM (TOOK QAM FOR 20 DAYS BETWEEN 7/15/08-08/28/08 THEN 5 DAYS FOLLOWING 8/28/08)
     Route: 048
     Dates: start: 20080715, end: 20080902

REACTIONS (6)
  - AMNIOTIC FLUID VOLUME INCREASED [None]
  - BLOOD PRESSURE INCREASED [None]
  - DEHYDRATION [None]
  - MUSCLE TWITCHING [None]
  - PREMATURE LABOUR [None]
  - UTERINE HYPERTONUS [None]
